FAERS Safety Report 17986840 (Version 5)
Quarter: 2021Q1

REPORT INFORMATION
  Report Type: Spontaneous
  Country: US (occurrence: US)
  Receive Date: 20200707
  Receipt Date: 20210115
  Transmission Date: 20210419
  Serious: Yes (Other)
  Sender: FDA-Public Use
  Company Number: US-HTU-2020US020784

PATIENT
  Sex: Female

DRUGS (13)
  1. LEVOTHYROXINE SODIUM. [Concomitant]
     Active Substance: LEVOTHYROXINE SODIUM
  2. VALCHLOR [Suspect]
     Active Substance: MECHLORETHAMINE
     Indication: CUTANEOUS T-CELL LYMPHOMA
     Dosage: UNK, QD
     Route: 061
     Dates: start: 2020
  3. LISINOPRIL. [Concomitant]
     Active Substance: LISINOPRIL
  4. LORAZEPAM. [Concomitant]
     Active Substance: LORAZEPAM
  5. TARGRETIN [Suspect]
     Active Substance: BEXAROTENE
     Dosage: UNK, TID
  6. NIFEDIPINE. [Concomitant]
     Active Substance: NIFEDIPINE
  7. TARGRETIN [Suspect]
     Active Substance: BEXAROTENE
     Dosage: UNK, QID
  8. MUPIROCIN. [Concomitant]
     Active Substance: MUPIROCIN
     Dosage: UNK, UNKNOWN
  9. PRALUENT [Concomitant]
     Active Substance: ALIROCUMAB
  10. VASCULERA [Concomitant]
     Active Substance: MEDICAL FOOD
  11. OMEGA?3                            /01866101/ [Concomitant]
     Active Substance: OMEGA-3 FATTY ACIDS
     Indication: BLOOD CHOLESTEROL INCREASED
  12. LOVAZA [Concomitant]
     Active Substance: OMEGA-3-ACID ETHYL ESTERS
  13. CEPHALEXIN                         /00145501/ [Concomitant]
     Active Substance: CEPHALEXIN

REACTIONS (9)
  - Application site warmth [Recovering/Resolving]
  - Dizziness [Recovering/Resolving]
  - Application site pain [Recovering/Resolving]
  - Feeling abnormal [Recovering/Resolving]
  - Application site fissure [Recovered/Resolved]
  - Application site cellulitis [Recovered/Resolved]
  - Localised infection [Recovering/Resolving]
  - Condition aggravated [Not Recovered/Not Resolved]
  - Application site erythema [Recovering/Resolving]

NARRATIVE: CASE EVENT DATE: 2020
